FAERS Safety Report 7227216-3 (Version None)
Quarter: 2011Q1

REPORT INFORMATION
  Report Type: 
  Country: None (occurrence: None)
  Receive Date: 20110114
  Receipt Date: 20101222
  Transmission Date: 20110831
  Serious: Yes (Death, Hospitalization)
  Sender: FDA-Public Use
  Company Number: A0800863A

PATIENT
  Age: 60 Year
  Sex: Male
  Weight: 204.5 kg

DRUGS (3)
  1. AVANDAMET [Suspect]
  2. AVANDIA [Suspect]
  3. AVANDARYL [Suspect]

REACTIONS (2)
  - MYOCARDIAL INFARCTION [None]
  - CARDIAC ARREST [None]
